FAERS Safety Report 24548420 (Version 1)
Quarter: 2024Q4

REPORT INFORMATION
  Report Type: Spontaneous
  Country: EU (occurrence: None)
  Receive Date: 20241025
  Receipt Date: 20241025
  Transmission Date: 20250115
  Serious: Yes (Hospitalization)
  Sender: ETHYPHARM
  Company Number: None

PATIENT

DRUGS (5)
  1. AMPHETAMINES NOS [Suspect]
     Active Substance: AMPHETAMINES NOS
  2. ALCOHOL [Suspect]
     Active Substance: ALCOHOL
  3. BUPRENORPHINE HYDROCHLORIDE [Suspect]
     Active Substance: BUPRENORPHINE HYDROCHLORIDE
  4. HEROIN [Suspect]
     Active Substance: DIAMORPHINE
  5. COCAINE [Suspect]
     Active Substance: COCAINE

REACTIONS (5)
  - Coma [Recovered/Resolved]
  - Transaminases increased [Recovered/Resolved]
  - Disturbance in attention [Recovered/Resolved]
  - Drug abuse [Not Recovered/Not Resolved]
  - Aggression [Recovered/Resolved]

NARRATIVE: CASE EVENT DATE: 20230515
